FAERS Safety Report 5006078-9 (Version None)
Quarter: 2006Q2

REPORT INFORMATION
  Report Type: 
  Country: None (occurrence: None)
  Receive Date: 20060518
  Receipt Date: 20060516
  Transmission Date: 20061013
  Serious: Yes (Hospitalization)
  Sender: FDA-Public Use
  Company Number: AU-MERCK-0605AUS00148

PATIENT
  Age: 66 Year
  Sex: Male

DRUGS (7)
  1. ZETIA [Suspect]
     Indication: DIABETES MELLITUS
     Route: 048
     Dates: start: 20051107, end: 20051223
  2. METFORMIN HYDROCHLORIDE [Concomitant]
     Indication: DIABETES MELLITUS
     Route: 048
  3. GLIMEPIRIDE [Concomitant]
     Indication: DIABETES MELLITUS
     Route: 048
  4. PRAVASTATIN SODIUM [Suspect]
     Indication: METABOLIC DISORDER
     Route: 048
     Dates: end: 20051223
  5. FENOFIBRATE [Suspect]
     Indication: METABOLIC DISORDER
     Route: 048
     Dates: start: 20051107, end: 20051223
  6. ROSIGLITAZONE MALEATE [Suspect]
     Indication: DIABETES MELLITUS
     Route: 048
     Dates: start: 20051210
  7. TELMISARTAN [Suspect]
     Indication: DIABETES MELLITUS
     Route: 048

REACTIONS (4)
  - ANAEMIA [None]
  - LIVER FUNCTION TEST ABNORMAL [None]
  - NAUSEA [None]
  - WEIGHT DECREASED [None]
